FAERS Safety Report 4742402-X (Version None)
Quarter: 2005Q3

REPORT INFORMATION
  Report Type: 
  Country: None (occurrence: None)
  Receive Date: 20050808
  Receipt Date: 20050626
  Transmission Date: 20060218
  Serious: No
  Sender: FDA-Public Use
  Company Number: CA_050608329

PATIENT
  Age: 14 Year
  Sex: Male
  Weight: 41 kg

DRUGS (4)
  1. STRATTERA [Suspect]
     Indication: ATTENTION DEFICIT/HYPERACTIVITY DISORDER
     Dosage: 40 MG DAY
     Dates: start: 20050413, end: 20050530
  2. HUMAN GRAOWTH HORMONE [Concomitant]
  3. CLOMIPRAMINE HCL [Concomitant]
  4. DEXEDRINE SPANSULE (DEXAMFETAMINE SULFATE) [Concomitant]

REACTIONS (2)
  - HEPATITIS [None]
  - INFLUENZA LIKE ILLNESS [None]
